FAERS Safety Report 4939556-9 (Version None)
Quarter: 2006Q1

REPORT INFORMATION
  Report Type: 
  Country: None (occurrence: None)
  Receive Date: 20060310
  Receipt Date: 20060127
  Transmission Date: 20060701
  Serious: Yes (Hospitalization)
  Sender: FDA-Public Use
  Company Number: HQWYE578130JAN06

PATIENT
  Sex: Male

DRUGS (3)
  1. ENBREL [Suspect]
     Indication: RHEUMATOID ARTHRITIS
     Route: 058
     Dates: start: 20050630, end: 20060106
  2. PREDNISOLONE [Concomitant]
     Dates: start: 20030826
  3. PENICILLAMINE [Concomitant]
     Dates: start: 20050630, end: 20060105

REACTIONS (1)
  - HAEMATOMA [None]
